FAERS Safety Report 7305189-2 (Version None)
Quarter: 2011Q1

REPORT INFORMATION
  Report Type: 
  Country: None (occurrence: None)
  Receive Date: 20110222
  Receipt Date: 20110215
  Transmission Date: 20110831
  Serious: Yes (Other)
  Sender: FDA-Public Use
  Company Number: US-PFIZER INC-2010131343

PATIENT
  Sex: Female
  Weight: 58.957 kg

DRUGS (7)
  1. SIMVASTATIN [Concomitant]
     Dosage: 40 MG, UNK
  2. IBUPROFEN [Concomitant]
     Indication: ARTHRITIS
     Dosage: UNK
  3. SYNTHROID [Concomitant]
     Dosage: UNK
  4. RAMIPRIL [Concomitant]
     Dosage: 10 MG, UNK
  5. AMLODIPINE BESYLATE [Suspect]
     Indication: CEREBROVASCULAR ACCIDENT
     Dosage: 10 MG, DAILY
     Route: 048
     Dates: start: 20100501
  6. AMLODIPINE BESYLATE [Suspect]
     Indication: HYPERTENSION
  7. LEVETIRACETAM [Suspect]
     Indication: CONVULSION
     Dosage: UNK
     Dates: start: 20090501, end: 20100101

REACTIONS (3)
  - BLOOD PRESSURE INADEQUATELY CONTROLLED [None]
  - CONVULSION [None]
  - DRUG INEFFECTIVE [None]
